FAERS Safety Report 24712757 (Version 1)
Quarter: 2024Q4

REPORT INFORMATION
  Report Type: Spontaneous
  Country: ES (occurrence: ES)
  Receive Date: 20241209
  Receipt Date: 20241209
  Transmission Date: 20250114
  Serious: Yes (Other)
  Sender: TEVA
  Company Number: None

PATIENT
  Age: 14 Year
  Sex: Male

DRUGS (1)
  1. ARIPIPRAZOLE [Suspect]
     Active Substance: ARIPIPRAZOLE
     Indication: Suicide attempt
     Dosage: TIME INTERVAL: TOTAL: ARIPIPRAZOLE (2933A)
     Route: 048
     Dates: start: 20241022, end: 20241022

REACTIONS (2)
  - Somnolence [Recovered/Resolved]
  - Dystonia [Recovered/Resolved]

NARRATIVE: CASE EVENT DATE: 20241022
